FAERS Safety Report 6330354-0 (Version None)
Quarter: 2009Q3

REPORT INFORMATION
  Report Type: 
  Country: None (occurrence: None)
  Receive Date: 20090826
  Receipt Date: 20090826
  Transmission Date: 20100115
  Serious: Yes (Other)
  Sender: FDA-Public Use
  Company Number: None

PATIENT
  Sex: Female
  Weight: 50.8029 kg

DRUGS (2)
  1. CYMBALTA [Suspect]
     Indication: DEPRESSION
     Dosage: ONE TAB DAILY PO
     Route: 048
     Dates: start: 20090812, end: 20090821
  2. CYMBALTA [Suspect]
     Indication: FATIGUE
     Dosage: ONE TAB DAILY PO
     Route: 048
     Dates: start: 20090812, end: 20090821

REACTIONS (3)
  - ASTHENIA [None]
  - BLOOD SODIUM DECREASED [None]
  - SYNCOPE [None]
